FAERS Safety Report 11360850 (Version 1)
Quarter: 2015Q3

REPORT INFORMATION
  Report Type: Report from Study
  Country: GB (occurrence: GB)
  Receive Date: 20150810
  Receipt Date: 20150810
  Transmission Date: 20151125
  Serious: Yes (Hospitalization)
  Sender: FDA-Public Use
  Company Number: GB-BEH-2015052498

PATIENT
  Age: 33 Year
  Sex: Female

DRUGS (1)
  1. RIASTAP [Suspect]
     Active Substance: FIBRINOGEN HUMAN
     Indication: POSTPARTUM HAEMORRHAGE
     Dates: start: 20130921, end: 20130921

REACTIONS (6)
  - Dyspnoea [Unknown]
  - Ovarian vein thrombosis [Recovered/Resolved]
  - Body temperature increased [Unknown]
  - Chest pain [Unknown]
  - Hyperhidrosis [Unknown]
  - Lower respiratory tract infection [Unknown]

NARRATIVE: CASE EVENT DATE: 20130930
